FAERS Safety Report 8763401 (Version 4)
Quarter: 2014Q3

REPORT INFORMATION
  Report Type: Spontaneous
  Country: US (occurrence: US)
  Receive Date: 20120831
  Receipt Date: 20140827
  Transmission Date: 20150326
  Serious: Yes (Other)
  Sender: FDA-Public Use
  Company Number: US-009507513-1208USA006210

PATIENT
  Sex: Male
  Weight: 90.7 kg

DRUGS (5)
  1. TRIAMCINOLONE [Concomitant]
     Active Substance: TRIAMCINOLONE
     Indication: HYPERSENSITIVITY
     Dosage: UNK
     Dates: start: 20001120
  2. PROPECIA [Suspect]
     Active Substance: FINASTERIDE
     Indication: ANDROGENETIC ALOPECIA
     Dosage: 1 MG, UNK
     Route: 048
     Dates: start: 1999, end: 2012
  3. CLARITIN [Concomitant]
     Active Substance: LORATADINE
     Indication: HYPERSENSITIVITY
     Dosage: UNK
     Dates: start: 19991020
  4. PROZAC [Suspect]
     Active Substance: FLUOXETINE HYDROCHLORIDE
     Dosage: UNK
     Dates: start: 19990802, end: 2000
  5. PROZAC [Suspect]
     Active Substance: FLUOXETINE HYDROCHLORIDE
     Dosage: UNK
     Dates: end: 20110615

REACTIONS (11)
  - Sexual dysfunction [Unknown]
  - Erectile dysfunction [Unknown]
  - Cognitive disorder [Unknown]
  - Depression [Unknown]
  - Deafness neurosensory [Unknown]
  - Androgen deficiency [Unknown]
  - Anxiety [Unknown]
  - Libido decreased [Unknown]
  - Dyslipidaemia [Unknown]
  - Hypogonadism [Unknown]
  - Priapism [Unknown]

NARRATIVE: CASE EVENT DATE: 2000
